FAERS Safety Report 11200437 (Version 1)
Quarter: 2015Q2

REPORT INFORMATION
  Report Type: Spontaneous
  Country: US (occurrence: US)
  Receive Date: 20150618
  Receipt Date: 20150618
  Transmission Date: 20150821
  Serious: Yes (Death)
  Sender: FDA-Public Use
  Company Number: US-JNJFOC-20150612749

PATIENT
  Age: 86 Year
  Sex: Male

DRUGS (6)
  1. DIGOXIN. [Concomitant]
     Active Substance: DIGOXIN
  2. METOPROLOL [Concomitant]
     Active Substance: METOPROLOL
  3. ECOTRIN [Concomitant]
     Active Substance: ASPIRIN
  4. LIPITOR [Concomitant]
     Active Substance: ATORVASTATIN CALCIUM
  5. IMBRUVICA [Suspect]
     Active Substance: IBRUTINIB
     Indication: CHRONIC LYMPHOCYTIC LEUKAEMIA
     Route: 048
     Dates: start: 20140404
  6. HYDRALAZINE [Concomitant]
     Active Substance: HYDRALAZINE HYDROCHLORIDE

REACTIONS (2)
  - Incorrect dose administered [Unknown]
  - Death [Fatal]

NARRATIVE: CASE EVENT DATE: 20140404
